FAERS Safety Report 13498878 (Version 1)
Quarter: 2017Q2

REPORT INFORMATION
  Report Type: Spontaneous
  Country: US (occurrence: US)
  Receive Date: 20170430
  Receipt Date: 20170430
  Transmission Date: 20170830
  Serious: Yes (Disabling)
  Sender: FDA-Public Use
  Company Number: None

PATIENT
  Age: 26 Year
  Sex: Male
  Weight: 82.35 kg

DRUGS (2)
  1. CETIRIZINE HCL [Suspect]
     Active Substance: CETIRIZINE HYDROCHLORIDE
     Indication: ECZEMA
     Dosage: ?          QUANTITY:90 TABLET(S);?
     Route: 048
     Dates: start: 20170415, end: 20170424
  2. VITAMIN C SUPPLEMENT [Concomitant]

REACTIONS (4)
  - Insomnia [None]
  - Urticaria [None]
  - Pruritus generalised [None]
  - Dermatitis allergic [None]

NARRATIVE: CASE EVENT DATE: 20170424
